FAERS Safety Report 18312143 (Version 3)
Quarter: 2025Q1

REPORT INFORMATION
  Report Type: Report from Study
  Country: US (occurrence: US)
  Receive Date: 20200925
  Receipt Date: 20250201
  Transmission Date: 20250408
  Serious: Yes (Other)
  Sender: ROCHE
  Company Number: US-ROCHE-2680251

PATIENT

DRUGS (6)
  1. ATEZOLIZUMAB [Suspect]
     Active Substance: ATEZOLIZUMAB
     Indication: Neoplasm malignant
     Route: 065
  2. NIVOLUMAB [Suspect]
     Active Substance: NIVOLUMAB
     Indication: Neoplasm malignant
     Route: 065
  3. PEMBROLIZUMAB [Suspect]
     Active Substance: PEMBROLIZUMAB
     Indication: Neoplasm malignant
     Route: 065
  4. IPILIMUMAB [Suspect]
     Active Substance: IPILIMUMAB
     Indication: Neoplasm malignant
     Route: 065
  5. AVELUMAB [Suspect]
     Active Substance: AVELUMAB
     Indication: Neoplasm malignant
     Route: 065
  6. DURVALUMAB [Suspect]
     Active Substance: DURVALUMAB
     Indication: Neoplasm malignant
     Route: 065

REACTIONS (16)
  - Gastrointestinal haemorrhage [Unknown]
  - Cerebral haemorrhage [Unknown]
  - Haemoptysis [Unknown]
  - Haematoma muscle [Unknown]
  - Endocrine toxicity [Unknown]
  - Hepatic enzyme increased [Unknown]
  - Colitis [Unknown]
  - Urogenital haemorrhage [Unknown]
  - Epistaxis [Unknown]
  - Thrombocytopenia [Unknown]
  - Anaemia [Unknown]
  - Gastrointestinal toxicity [Unknown]
  - Haemothorax [Unknown]
  - Pulmonary alveolar haemorrhage [Unknown]
  - Pericardial effusion [Unknown]
  - Retroperitoneal haemorrhage [Unknown]
